FAERS Safety Report 19323720 (Version 1)
Quarter: 2021Q2

REPORT INFORMATION
  Report Type: Report from Study
  Country: GB (occurrence: GB)
  Receive Date: 20210528
  Receipt Date: 20210528
  Transmission Date: 20210717
  Serious: Yes (Other)
  Sender: FDA-Public Use
  Company Number: GB-ASPEN-GLO2021GB003951

PATIENT

DRUGS (3)
  1. NINLARO [Suspect]
     Active Substance: IXAZOMIB CITRATE
     Indication: PLASMA CELL MYELOMA
     Dosage: 4 MG
     Route: 048
     Dates: start: 20210123, end: 20210415
  2. DEXAMETHASONE. [Suspect]
     Active Substance: DEXAMETHASONE
     Indication: PLASMA CELL MYELOMA
     Dosage: UNK
     Route: 048
     Dates: start: 20210123, end: 20210415
  3. LENALIDOMIDE [Suspect]
     Active Substance: LENALIDOMIDE
     Indication: PLASMA CELL MYELOMA
     Dosage: UNK, QD
     Route: 048
     Dates: start: 20210123, end: 20210415

REACTIONS (6)
  - Dyspepsia [Recovering/Resolving]
  - Haemoglobin decreased [Unknown]
  - Plasma cell myeloma [Unknown]
  - Hiccups [Recovering/Resolving]
  - Platelet count decreased [Unknown]
  - Paraproteinaemia [Unknown]

NARRATIVE: CASE EVENT DATE: 20210124
